FAERS Safety Report 10921512 (Version 1)
Quarter: 2015Q1

REPORT INFORMATION
  Report Type: Spontaneous
  Country: None (occurrence: None)
  Receive Date: 20150313
  Receipt Date: 20150313
  Transmission Date: 20150721
  Serious: No
  Sender: FDA-Public Use
  Company Number: None

PATIENT
  Sex: Male

DRUGS (1)
  1. HARVONI [Suspect]
     Active Substance: LEDIPASVIR\SOFOSBUVIR
     Dosage: 1 TABLET QD ORAL
     Route: 048

REACTIONS (3)
  - Hypersomnia [None]
  - Headache [None]
  - Fatigue [None]

NARRATIVE: CASE EVENT DATE: 20150312
